FAERS Safety Report 23139787 (Version 1)
Quarter: 2023Q4

REPORT INFORMATION
  Report Type: Spontaneous
  Country: US (occurrence: None)
  Receive Date: 20231102
  Receipt Date: 20231102
  Transmission Date: 20240110
  Serious: Yes (Hospitalization)
  Sender: FDA-Public Use
  Company Number: None

PATIENT
  Age: 75 Year
  Sex: Male

DRUGS (16)
  1. PULMOZYME [Suspect]
     Active Substance: DORNASE ALFA
     Indication: Cystic fibrosis
     Dosage: OTHER QUANTITY : 2.5MG/2.5ML;?
     Route: 055
     Dates: start: 20150708
  2. ATROVENT HFA AER 17MCG [Concomitant]
  3. CEFEPIME INJ 1GM [Concomitant]
  4. DILTIAZEM CAP 180MG ER [Concomitant]
  5. EZETIMIBE TAB 10MG [Concomitant]
  6. FINASTERIDE TAB 5MG [Concomitant]
  7. FLUTICASONE SPR 50MCG [Concomitant]
  8. LOPID TAB 600MG [Concomitant]
  9. LOSARTAN POT TAB 25MG [Concomitant]
  10. MONTELUKAST TAB 10MG [Concomitant]
  11. SPIRIVA CAP HANDIHLR [Concomitant]
  12. SYMBICORT AER 160-4.5 [Concomitant]
  13. TRIAMT/HCTZ TAB 75-50MG [Concomitant]
  14. TRIKAFTA TAB 100/50/75MG-150MG [Concomitant]
  15. VENTOLIN HFA AER [Concomitant]
  16. XARELTO TAB 2.5MG [Concomitant]

REACTIONS (1)
  - Cancer surgery [None]

NARRATIVE: CASE EVENT DATE: 20231001
